FAERS Safety Report 24533850 (Version 1)
Quarter: 2024Q4

REPORT INFORMATION
  Report Type: Spontaneous
  Country: US (occurrence: US)
  Receive Date: 20241022
  Receipt Date: 20241022
  Transmission Date: 20250114
  Serious: No
  Sender: ALIMERA
  Company Number: US-ALIMERA SCIENCES INC.-US-A16013-24-000517

PATIENT
  Sex: Male

DRUGS (1)
  1. ILUVIEN [Suspect]
     Active Substance: FLUOCINOLONE ACETONIDE
     Indication: Diabetic retinal oedema
     Dosage: 0.25 MILLIGRAM, QD -UNKNOWN EYE
     Route: 031
     Dates: start: 20240816, end: 20240816

REACTIONS (2)
  - Circumstance or information capable of leading to medication error [Unknown]
  - Device failure [Unknown]

NARRATIVE: CASE EVENT DATE: 20240816
